FAERS Safety Report 14110646 (Version 2)
Quarter: 2017Q4

REPORT INFORMATION
  Report Type: Report from Study
  Country: AR (occurrence: AR)
  Receive Date: 20171020
  Receipt Date: 20171102
  Transmission Date: 20180321
  Serious: Yes (Hospitalization, Disabling, Other)
  Sender: FDA-Public Use
  Company Number: PHHY2017AR152415

PATIENT
  Sex: Male

DRUGS (2)
  1. ENTRESTO [Suspect]
     Active Substance: SACUBITRIL\VALSARTAN
     Indication: CARDIAC FAILURE CHRONIC
     Dosage: 50 MG, BID
     Route: 065
     Dates: start: 20170516
  2. MORPHINE [Concomitant]
     Active Substance: MORPHINE
     Indication: INSOMNIA
     Dosage: 30 DRP, QD (AFTER DINNER)
     Route: 048

REACTIONS (11)
  - Weight decreased [Unknown]
  - Pain [Unknown]
  - Gait disturbance [Not Recovered/Not Resolved]
  - Skin ulcer [Not Recovered/Not Resolved]
  - Hypertension [Recovering/Resolving]
  - Diabetes mellitus [Recovering/Resolving]
  - Cardiac failure [Recovering/Resolving]
  - Gait inability [Unknown]
  - Burning sensation [Unknown]
  - Cardiovascular disorder [Unknown]
  - Impaired healing [Unknown]
